FAERS Safety Report 7380143-3 (Version None)
Quarter: 2011Q1

REPORT INFORMATION
  Report Type: 
  Country: None (occurrence: None)
  Receive Date: 20110329
  Receipt Date: 20100730
  Transmission Date: 20110831
  Serious: No
  Sender: FDA-Public Use
  Company Number: US-MYLANLABS-2010S1014082

PATIENT
  Sex: Female

DRUGS (2)
  1. ESTRADIOL [Suspect]
     Indication: HORMONE REPLACEMENT THERAPY
     Dosage: QW
     Route: 062
     Dates: start: 20090101, end: 20100701
  2. ESTRADIOL [Suspect]
     Dosage: QW
     Route: 062
     Dates: start: 20100729

REACTIONS (2)
  - APPLICATION SITE SWELLING [None]
  - APPLICATION SITE URTICARIA [None]
